FAERS Safety Report 5927377-X (Version None)
Quarter: 2008Q4

REPORT INFORMATION
  Report Type: 
  Country: None (occurrence: None)
  Receive Date: 20081021
  Receipt Date: 20081021
  Transmission Date: 20090506
  Serious: No
  Sender: FDA-Public Use
  Company Number: None

PATIENT
  Age: 26 Year
  Sex: Female
  Weight: 72.5755 kg

DRUGS (1)
  1. MIRENA [Suspect]
     Dates: start: 20080724

REACTIONS (3)
  - HAEMORRHAGE [None]
  - IUD MIGRATION [None]
  - UTERINE RUPTURE [None]
